FAERS Safety Report 9379836 (Version 9)
Quarter: 2016Q1

REPORT INFORMATION
  Report Type: Report from Study
  Country: RO (occurrence: RO)
  Receive Date: 20130702
  Receipt Date: 20160318
  Transmission Date: 20160526
  Serious: Yes (Hospitalization, Disabling)
  Sender: FDA-Public Use
  Company Number: RO-ASTELLAS-2013US005138

PATIENT
  Age: 72 Year
  Sex: Male

DRUGS (12)
  1. ONDANSETRON [Concomitant]
     Active Substance: ONDANSETRON
     Dosage: UNK, UNKNOWN FREQ.
     Route: 065
     Dates: start: 20120515, end: 20120515
  2. ADRENOSTAZIN [Concomitant]
     Indication: CHEST PAIN
     Route: 065
     Dates: start: 20130221
  3. ONDANSETRON [Concomitant]
     Active Substance: ONDANSETRON
     Dosage: UNK, UNKNOWN FREQ.
     Route: 065
     Dates: start: 20120705, end: 20120705
  4. ERLOTINIB [Suspect]
     Active Substance: ERLOTINIB
     Indication: LUNG NEOPLASM MALIGNANT
     Dosage: 150 MG, ONCE DAILY (LAST DOSE PRIOR TO HEMOPTYSIS: 09/MAY/2013)
     Route: 048
     Dates: start: 20120813
  5. IBUPROFEN. [Concomitant]
     Active Substance: IBUPROFEN
     Indication: CHEST PAIN
     Route: 065
     Dates: start: 20130307
  6. GRANISETRON                        /01178102/ [Concomitant]
     Active Substance: GRANISETRON
     Dosage: UNK, UNKNOWN FREQ.
     Route: 065
     Dates: start: 20120607, end: 20120610
  7. GRANISETRON                        /01178102/ [Concomitant]
     Active Substance: GRANISETRON
     Indication: VOMITING
     Dosage: UNK UNK, UNKNOWN FREQ.
     Route: 065
     Dates: start: 20120516, end: 20120517
  8. ETAMSILAT [Concomitant]
     Indication: HAEMOPTYSIS
     Route: 065
     Dates: start: 20130318
  9. PARACETAMOL [Concomitant]
     Active Substance: ACETAMINOPHEN
     Indication: CHEST PAIN
     Route: 065
     Dates: start: 20120813
  10. ONDANSETRON [Concomitant]
     Active Substance: ONDANSETRON
     Indication: VOMITING
     Dosage: UNK UNK, UNKNOWN FREQ.
     Route: 065
     Dates: start: 20120424, end: 20120425
  11. ONDANSETRON [Concomitant]
     Active Substance: ONDANSETRON
     Dosage: UNK, UNKNOWN FREQ.
     Route: 065
     Dates: start: 20120606, end: 20120606
  12. OMNIC TOCAS [Concomitant]
     Indication: PROSTATIC ADENOMA
     Route: 065
     Dates: start: 2009

REACTIONS (2)
  - Haemoptysis [Recovered/Resolved]
  - Anaemia [Recovered/Resolved]

NARRATIVE: CASE EVENT DATE: 20130405
